FAERS Safety Report 4662487-9 (Version None)
Quarter: 2005Q2

REPORT INFORMATION
  Report Type: 
  Country: None (occurrence: None)
  Receive Date: 20050516
  Receipt Date: 20050209
  Transmission Date: 20051028
  Serious: Yes (Hospitalization, Disabling)
  Sender: FDA-Public Use
  Company Number: DK-ROCHE-395150

PATIENT
  Age: 59 Year
  Sex: Male
  Weight: 70 kg

DRUGS (5)
  1. VALCYTE [Suspect]
     Dosage: DOSAGE REGIMEN REPORTED AS X 2.
     Route: 048
     Dates: start: 20050106, end: 20050110
  2. VALCYTE [Suspect]
     Dosage: DOSE REGIMEN REPORTED AS X 1.
     Route: 048
     Dates: start: 20050110
  3. CYMEVENE [Suspect]
     Dosage: DOSE REGIMEN REPORTED AS X 1.
     Route: 042
     Dates: start: 20041230, end: 20050106
  4. AZATHIOPRINE [Suspect]
     Dosage: DOSE REGIMEN REPORTED AS X 1.
     Route: 048
     Dates: start: 20041125, end: 20050223
  5. SANDIMMUNE [Suspect]
     Dosage: STRENGTH AND FORMULATION REPORTED AS 'ACCORDING TO TROUGH LEVELS'.
     Route: 048
     Dates: start: 20041125

REACTIONS (4)
  - BLOOD ALKALINE PHOSPHATASE INCREASED [None]
  - BLOOD BILIRUBIN INCREASED [None]
  - PRURITUS [None]
  - PRURITUS GENERALISED [None]
